FAERS Safety Report 13710778 (Version 1)
Quarter: 2017Q3

REPORT INFORMATION
  Report Type: Spontaneous
  Country: US (occurrence: US)
  Receive Date: 20170701
  Receipt Date: 20170701
  Transmission Date: 20171127
  Serious: Yes (Hospitalization)
  Sender: FDA-Public Use
  Company Number: None

PATIENT
  Age: 28 Year
  Sex: Female
  Weight: 86.2 kg

DRUGS (1)
  1. NOLVADEX [Suspect]
     Active Substance: TAMOXIFEN CITRATE
     Dates: end: 20151118

REACTIONS (13)
  - Cough [None]
  - Upper respiratory tract infection [None]
  - Pelvic pain [None]
  - Dizziness [None]
  - Asthenia [None]
  - Vomiting [None]
  - Anaemia [None]
  - Vaginal haemorrhage [None]
  - Myalgia [None]
  - Ileus [None]
  - Blood pressure systolic decreased [None]
  - Neutrophil count decreased [None]
  - Abdominal pain [None]

NARRATIVE: CASE EVENT DATE: 20151118
